FAERS Safety Report 5524763-7 (Version None)
Quarter: 2007Q4

REPORT INFORMATION
  Report Type: 
  Country: None (occurrence: None)
  Receive Date: 20071123
  Receipt Date: 20071115
  Transmission Date: 20080405
  Serious: Yes (Hospitalization, Other)
  Sender: FDA-Public Use
  Company Number: PHHO2007KR19034

PATIENT
  Age: 27 Year
  Sex: Male

DRUGS (4)
  1. *CGP 57148B* [Suspect]
     Indication: CHRONIC MYELOID LEUKAEMIA
     Dosage: 400 MG, QD
     Route: 048
     Dates: start: 20060711, end: 20060920
  2. *CGP 57148B* [Suspect]
     Dosage: NO TREATMENT
     Dates: start: 20060921, end: 20061016
  3. *CGP 57148B* [Suspect]
     Dosage: 300 MG, QD
     Route: 048
     Dates: start: 20061017, end: 20061226
  4. *CGP 57148B* [Suspect]
     Dosage: 400 MG, QD
     Route: 048
     Dates: start: 20061227

REACTIONS (6)
  - ARTHRALGIA [None]
  - CAST APPLICATION [None]
  - FALL [None]
  - JOINT INJURY [None]
  - NEUTROPENIA [None]
  - THROMBOCYTOPENIA [None]
